FAERS Safety Report 9385679 (Version 1)
Quarter: 2013Q3

REPORT INFORMATION
  Report Type: Spontaneous
  Country: CA (occurrence: CA)
  Receive Date: 20130705
  Receipt Date: 20130705
  Transmission Date: 20140515
  Serious: Yes (Hospitalization)
  Sender: FDA-Public Use
  Company Number: CA-ASTRAZENECA-2013SE49598

PATIENT
  Age: 78 Year
  Sex: Male

DRUGS (11)
  1. CRESTOR [Suspect]
     Indication: HYPERCHOLESTEROLAEMIA
     Route: 048
  2. BRILINTA [Suspect]
     Indication: ACUTE CORONARY SYNDROME
     Route: 048
     Dates: start: 20130205, end: 20130205
  3. ASA [Concomitant]
     Route: 048
     Dates: end: 20130205
  4. FUFUROFEMIDE [Concomitant]
     Route: 048
  5. ISOSORBIDE [Concomitant]
     Route: 048
  6. METOPROLOL [Concomitant]
     Route: 048
  7. NITRO SPRAY [Concomitant]
     Dosage: AS NEEDED
     Route: 048
  8. PANTOPROL [Concomitant]
     Route: 048
  9. RAMIPRIL [Concomitant]
     Route: 048
  10. REPAGLIDENIDE [Concomitant]
     Route: 048
  11. TAMSULUSIN [Concomitant]
     Route: 048

REACTIONS (2)
  - Cerebrovascular accident [Recovering/Resolving]
  - Haemorrhage intracranial [Recovering/Resolving]
